FAERS Safety Report 7890299-1 (Version None)
Quarter: 2011Q4

REPORT INFORMATION
  Report Type: 
  Country: None (occurrence: None)
  Receive Date: 20111103
  Receipt Date: 20110805
  Transmission Date: 20120403
  Serious: No
  Sender: FDA-Public Use
  Company Number: US-AMGEN-USASP2011039928

PATIENT
  Sex: Female

DRUGS (1)
  1. ENBREL [Suspect]
     Indication: RHEUMATOID ARTHRITIS
     Dosage: 25 MG, 2 TIMES/WK
     Dates: start: 20010101, end: 20110715

REACTIONS (7)
  - ARTHROPOD BITE [None]
  - CELLULITIS [None]
  - OROPHARYNGEAL PAIN [None]
  - ANTIBIOTIC RESISTANT STAPHYLOCOCCUS TEST POSITIVE [None]
  - ANGIOEDEMA [None]
  - SINUSITIS [None]
  - URTICARIA [None]
